FAERS Safety Report 9308182 (Version 5)
Quarter: 2013Q3

REPORT INFORMATION
  Report Type: Report from Study
  Country: FR (occurrence: FR)
  Receive Date: 20130524
  Receipt Date: 20130710
  Transmission Date: 20140515
  Serious: Yes (Hospitalization)
  Sender: FDA-Public Use
  Company Number: FR-PFIZER INC-2013150227

PATIENT
  Age: 76 Year
  Sex: Male
  Weight: 74 kg

DRUGS (11)
  1. TEMSIROLIMUS [Suspect]
     Indication: MANTLE CELL LYMPHOMA
     Dosage: 15 MG, CYCLIC
     Dates: start: 20130213, end: 20130513
  2. RITUXIMAB [Concomitant]
     Dosage: UNK
  3. FLUDARABINE [Concomitant]
     Dosage: UNK
  4. CYCLOPHOSPHAMIDE [Concomitant]
     Dosage: UNK
  5. SERETIDE [Concomitant]
     Indication: ASTHMA
     Dosage: UNK
  6. SPIRIVA [Concomitant]
     Indication: ASTHMA
     Dosage: UNK
  7. KARDEGIC [Concomitant]
     Indication: PROPHYLAXIS
     Dosage: UNK
  8. ESOMEPRAZOLE [Concomitant]
     Indication: PROPHYLAXIS
     Dosage: UNK
  9. CRESTOR [Concomitant]
     Indication: PROPHYLAXIS
     Dosage: UNK
  10. VESICARE [Concomitant]
     Indication: PROSTATIC DISORDER
     Dosage: UNK
  11. ZOLPIDEM [Concomitant]
     Indication: INSOMNIA
     Dosage: UNK

REACTIONS (3)
  - Febrile bone marrow aplasia [Recovered/Resolved]
  - Renal failure acute [Recovered/Resolved]
  - Campylobacter gastroenteritis [Recovered/Resolved]
